FAERS Safety Report 9352739 (Version 2)
Quarter: 2013Q2

REPORT INFORMATION
  Report Type: Spontaneous
  Country: US (occurrence: US)
  Receive Date: 20130618
  Receipt Date: 20130621
  Transmission Date: 20140414
  Serious: Yes (Other)
  Sender: FDA-Public Use
  Company Number: US-ASTRAZENECA-2013SE46558

PATIENT
  Age: 67 Year
  Sex: Female
  Weight: 43.1 kg

DRUGS (2)
  1. FASLODEX [Suspect]
     Indication: BREAST CANCER RECURRENT
     Dosage: 2 250 MG MONTHLY
     Route: 030
     Dates: start: 201210, end: 20130614
  2. GENERIC LEVISIN [Concomitant]
     Indication: IRRITABLE BOWEL SYNDROME

REACTIONS (15)
  - Cataract [Recovered/Resolved]
  - Hypoaesthesia [Not Recovered/Not Resolved]
  - Syncope [Recovered/Resolved]
  - Gait disturbance [Recovering/Resolving]
  - Neoplasm skin [Recovered/Resolved]
  - Naevus haemorrhage [Recovered/Resolved]
  - Pain in extremity [Not Recovered/Not Resolved]
  - Nervous system disorder [Not Recovered/Not Resolved]
  - Paraesthesia [Not Recovered/Not Resolved]
  - Musculoskeletal disorder [Recovering/Resolving]
  - Pruritus [Recovered/Resolved]
  - Fatigue [Recovering/Resolving]
  - Nausea [Recovering/Resolving]
  - Vomiting [Recovered/Resolved]
  - Off label use [Recovered/Resolved]
